FAERS Safety Report 5005919-9 (Version None)
Quarter: 2006Q1

REPORT INFORMATION
  Report Type: 
  Country: None (occurrence: None)
  Receive Date: 20060320
  Receipt Date: 20050218
  Transmission Date: 20060701
  Serious: Yes (Hospitalization, Other)
  Sender: FDA-Public Use
  Company Number: 2005-02-1265

PATIENT
  Age: 42 Year
  Sex: Female
  Weight: 72.5755 kg

DRUGS (4)
  1. PEG-INTRON [Suspect]
     Indication: HEPATITIS C
     Dosage: 120 MCG QWK  SUBCUTANEOUS
     Route: 058
     Dates: start: 20050107, end: 20050128
  2. REBETOL [Suspect]
     Indication: HEPATITIS C
     Dosage: ORAL
     Route: 048
     Dates: start: 20050107, end: 20050128
  3. LEXAPRO [Concomitant]
  4. RESTORIL [Concomitant]

REACTIONS (1)
  - HOMICIDAL IDEATION [None]
